FAERS Safety Report 6180998-4 (Version None)
Quarter: 2009Q2

REPORT INFORMATION
  Report Type: 
  Country: None (occurrence: None)
  Receive Date: 20090504
  Receipt Date: 20090504
  Transmission Date: 20091009
  Serious: Yes (Hospitalization)
  Sender: FDA-Public Use
  Company Number: None

PATIENT
  Age: 42 Year
  Sex: Female

DRUGS (1)
  1. KETOCONAZOLE [Suspect]
     Indication: HISTOPLASMOSIS DISSEMINATED
     Dosage: 400 MG BID PO
     Route: 048
     Dates: start: 20090101, end: 20090424

REACTIONS (5)
  - ABDOMINAL PAIN UPPER [None]
  - BLOOD ALKALINE PHOSPHATASE INCREASED [None]
  - HEPATIC ENZYME INCREASED [None]
  - NAUSEA [None]
  - VOMITING [None]
